FAERS Safety Report 21085475 (Version 1)
Quarter: 2022Q3

REPORT INFORMATION
  Report Type: Spontaneous
  Country: AU (occurrence: AU)
  Receive Date: 20220715
  Receipt Date: 20220715
  Transmission Date: 20221027
  Serious: Yes (Other)
  Sender: FDA-Public Use
  Company Number: None

PATIENT
  Age: 17 Year
  Sex: Male

DRUGS (6)
  1. FLUOXETINE [Interacting]
     Active Substance: FLUOXETINE HYDROCHLORIDE
     Indication: Product used for unknown indication
     Dosage: 20 MILLIGRAM PER DAY
     Route: 065
  2. LORATADINE [Interacting]
     Active Substance: LORATADINE
     Indication: Product used for unknown indication
     Dosage: 10 MILLIGRAM PER DAY
     Route: 065
  3. CANNABIDIOL [Interacting]
     Active Substance: CANNABIDIOL
     Indication: Autism spectrum disorder
     Dosage: UNK (OIL; INITIAL DOSE NOT STATED)
     Route: 048
  4. CANNABIDIOL [Interacting]
     Active Substance: CANNABIDIOL
     Dosage: 18 MILLIGRAM, BID (GRADUAL UP-TITRATION TO TWICE DAILY 18 MG)
     Route: 048
  5. RISPERIDONE [Interacting]
     Active Substance: RISPERIDONE
     Indication: Product used for unknown indication
     Dosage: 0.5 MILLIGRAM, EVERY 12 HRS
     Route: 065
  6. CLONIDINE [Interacting]
     Active Substance: CLONIDINE
     Indication: Product used for unknown indication
     Dosage: 0.1 MILLIGRAM PER DAY
     Route: 065

REACTIONS (10)
  - Drug-genetic interaction [Unknown]
  - Psychomotor hyperactivity [Recovered/Resolved]
  - Obsessive-compulsive disorder [Recovered/Resolved]
  - Condition aggravated [Recovered/Resolved]
  - Insomnia [Recovered/Resolved]
  - Agitation [Recovered/Resolved]
  - Akathisia [Recovered/Resolved]
  - Mydriasis [Recovered/Resolved]
  - Screaming [Recovered/Resolved]
  - Drug interaction [Unknown]
